FAERS Safety Report 20508649 (Version 1)
Quarter: 2022Q1

REPORT INFORMATION
  Report Type: Spontaneous
  Country: US (occurrence: None)
  Receive Date: 20220223
  Receipt Date: 20220223
  Transmission Date: 20220424
  Serious: Yes (Other)
  Sender: FDA-Public Use
  Company Number: None

PATIENT
  Age: 79 Year
  Sex: Female
  Weight: 49.95 kg

DRUGS (15)
  1. PROLIA [Suspect]
     Active Substance: DENOSUMAB
     Indication: Osteoporosis
     Route: 058
     Dates: start: 20220214, end: 20220214
  2. Zeljanz [Concomitant]
  3. LEFLUNOMIDE [Concomitant]
     Active Substance: LEFLUNOMIDE
  4. AMLODIPINE [Concomitant]
     Active Substance: AMLODIPINE BESYLATE
  5. LOSARTAN [Concomitant]
     Active Substance: LOSARTAN
  6. metoprolol Succo ER [Concomitant]
  7. SIMBRINZA [Concomitant]
     Active Substance: BRIMONIDINE TARTRATE\BRINZOLAMIDE
  8. LUMIGAN [Concomitant]
     Active Substance: BIMATOPROST
  9. OXYCODONE [Concomitant]
     Active Substance: OXYCODONE
  10. METHYLCOBALAMIN [Concomitant]
     Active Substance: METHYLCOBALAMIN
  11. METHYL FOLATE [Concomitant]
  12. BIOTIN [Concomitant]
     Active Substance: BIOTIN
  13. CALCIUM [Concomitant]
     Active Substance: CALCIUM
  14. mega red [Concomitant]
  15. D3+ K2 [Concomitant]

REACTIONS (2)
  - Bone pain [None]
  - Arthralgia [None]

NARRATIVE: CASE EVENT DATE: 20220221
